FAERS Safety Report 5465911-7 (Version None)
Quarter: 2007Q3

REPORT INFORMATION
  Report Type: 
  Country: None (occurrence: None)
  Receive Date: 20070924
  Receipt Date: 20070914
  Transmission Date: 20080115
  Serious: No
  Sender: FDA-Public Use
  Company Number: US-BAXTER-2007BH007710

PATIENT
  Age: 69 Year
  Sex: Female
  Weight: 107 kg

DRUGS (1)
  1. DIANEAL [Suspect]
     Indication: RENAL FAILURE CHRONIC
     Route: 033
     Dates: end: 20070316

REACTIONS (4)
  - ABDOMINAL ADHESIONS [None]
  - APPENDICITIS [None]
  - CATHETER RELATED COMPLICATION [None]
  - PERITONITIS BACTERIAL [None]
